FAERS Safety Report 8006265-1 (Version None)
Quarter: 2011Q4

REPORT INFORMATION
  Report Type: 
  Country: None (occurrence: None)
  Receive Date: 20111226
  Receipt Date: 20111216
  Transmission Date: 20120403
  Serious: Yes (Hospitalization)
  Sender: FDA-Public Use
  Company Number: PHFR2011GB04105

PATIENT
  Sex: Male

DRUGS (1)
  1. TEGRETOL [Suspect]
     Dosage: UNK
     Route: 048

REACTIONS (3)
  - CONVULSION [None]
  - STATUS EPILEPTICUS [None]
  - ANTICONVULSANT DRUG LEVEL DECREASED [None]
